FAERS Safety Report 4471643-4 (Version None)
Quarter: 2004Q4

REPORT INFORMATION
  Report Type: 
  Country: None (occurrence: None)
  Receive Date: 20041012
  Receipt Date: 20041004
  Transmission Date: 20050328
  Serious: Yes (Other)
  Sender: FDA-Public Use
  Company Number: 200419888GDDC

PATIENT
  Age: 5 Year
  Sex: Male

DRUGS (8)
  1. HYDROCORTISONE [Suspect]
     Dosage: DOSE: UNK
  2. CORTISONE ACETATE [Suspect]
     Indication: ASTHMA
     Dosage: DOSE: UNK
  3. CORTISONE ACETATE [Suspect]
     Indication: RHINITIS ALLERGIC
     Dosage: DOSE: UNK
  4. TRIAMCINOLONE [Suspect]
     Dosage: DOSE: UNK
  5. DEXAMETHASONE [Suspect]
     Dosage: DOSE: UNK
  6. METHYLPREDNISOLONE [Suspect]
     Dosage: DOSE: UNK
  7. PREDNISOLONE [Suspect]
  8. ASPIRIN [Suspect]
     Dosage: DOSE: UNK

REACTIONS (3)
  - ANGIONEUROTIC OEDEMA [None]
  - DRUG HYPERSENSITIVITY [None]
  - SKIN TEST POSITIVE [None]
